FAERS Safety Report 9634856 (Version 1)
Quarter: 2013Q4

REPORT INFORMATION
  Report Type: Spontaneous
  Country: US (occurrence: US)
  Receive Date: 20131021
  Receipt Date: 20131021
  Transmission Date: 20140711
  Serious: No
  Sender: FDA-Public Use
  Company Number: US-PURDUE-USA-2013-0102031

PATIENT
  Age: 27 Year
  Sex: Female

DRUGS (3)
  1. BUTRANS [Suspect]
     Indication: BACK PAIN
     Dosage: 5 MCG/HR, WEEKLY
     Route: 062
     Dates: start: 201205, end: 20130430
  2. SAVELLA [Concomitant]
     Indication: ANTIDEPRESSANT THERAPY
     Dosage: 1 DF, BID
     Route: 048
     Dates: start: 201205
  3. SAVELLA [Concomitant]
     Indication: PAIN

REACTIONS (5)
  - Application site haemorrhage [Recovered/Resolved]
  - Application site scab [Recovered/Resolved]
  - Vomiting [Recovered/Resolved]
  - Application site discharge [Recovered/Resolved]
  - Application site pruritus [Recovered/Resolved]
